FAERS Safety Report 4937247-1 (Version None)
Quarter: 2006Q1

REPORT INFORMATION
  Report Type: 
  Country: None (occurrence: None)
  Receive Date: 20060307
  Receipt Date: 20060307
  Transmission Date: 20060701
  Serious: Yes (Other)
  Sender: FDA-Public Use
  Company Number: None

PATIENT
  Age: 60 Year
  Sex: Male
  Weight: 87.5442 kg

DRUGS (2)
  1. DIOVAN [Suspect]
     Indication: HYPERTENSION
     Dosage: 80MG DAILY PO
     Route: 048
     Dates: start: 20050325, end: 20050329
  2. DIOVAN [Suspect]
     Indication: HYPERTENSION
     Dosage: 80MG DAILY PO
     Route: 048
     Dates: start: 20050404, end: 20050411

REACTIONS (16)
  - ANURIA [None]
  - BEDRIDDEN [None]
  - CHROMATURIA [None]
  - DISLOCATION OF VERTEBRA [None]
  - GOUT [None]
  - IMMUNE SYSTEM DISORDER [None]
  - INFECTION [None]
  - MUSCLE SPASMS [None]
  - MYALGIA [None]
  - OEDEMA PERIPHERAL [None]
  - PAIN [None]
  - RENAL FAILURE [None]
  - TENDON DISORDER [None]
  - URINE ODOUR ABNORMAL [None]
  - WALKING AID USER [None]
  - WEIGHT INCREASED [None]
